FAERS Safety Report 7633219-7 (Version None)
Quarter: 2011Q3

REPORT INFORMATION
  Report Type: 
  Country: None (occurrence: None)
  Receive Date: 20110725
  Receipt Date: 20110714
  Transmission Date: 20111222
  Serious: Yes (Other)
  Sender: FDA-Public Use
  Company Number: CA-ROCHE-789369

PATIENT
  Sex: Female
  Weight: 74.8 kg

DRUGS (2)
  1. CYCLEN [Concomitant]
     Route: 048
  2. ACCUTANE [Suspect]
     Indication: ACNE
     Route: 048
     Dates: start: 20070101, end: 20091101

REACTIONS (2)
  - HEADACHE [None]
  - BENIGN NEOPLASM OF THYROID GLAND [None]
